FAERS Safety Report 4510443-3 (Version None)
Quarter: 2004Q4

REPORT INFORMATION
  Report Type: 
  Country: None (occurrence: None)
  Receive Date: 20041122
  Receipt Date: 20041117
  Transmission Date: 20050328
  Serious: Yes (Death)
  Sender: FDA-Public Use
  Company Number: 2004S1000203

PATIENT
  Age: 49 Year
  Sex: Male
  Weight: 65 kg

DRUGS (5)
  1. CUBICIN [Suspect]
     Indication: ENDOCARDITIS
     Dosage: 360 MG;Q48H;IV
     Route: 042
     Dates: start: 20040817, end: 20040908
  2. CUBICIN [Suspect]
     Indication: STAPHYLOCOCCAL INFECTION
     Dosage: 360 MG;Q48H;IV
     Route: 042
     Dates: start: 20040817, end: 20040908
  3. VANCOMYCIN [Concomitant]
  4. RIFAMPICIN [Concomitant]
  5. GENTAMICIN [Concomitant]

REACTIONS (14)
  - BLOOD CULTURE POSITIVE [None]
  - CARDIAC VALVE VEGETATION [None]
  - CEREBROVASCULAR ACCIDENT [None]
  - CONDITION AGGRAVATED [None]
  - DISEASE PROGRESSION [None]
  - DRUG INEFFECTIVE [None]
  - ECHOCARDIOGRAM ABNORMAL [None]
  - EMBOLISM [None]
  - ENDOCARDITIS [None]
  - MEDICAL DEVICE COMPLICATION [None]
  - METHICILLIN-RESISTANT STAPHYLOCOCCAL AUREUS TEST POSITIVE [None]
  - PATHOGEN RESISTANCE [None]
  - SEPTIC EMBOLUS [None]
  - THERAPY NON-RESPONDER [None]
